FAERS Safety Report 6532269-1 (Version None)
Quarter: 2010Q1

REPORT INFORMATION
  Report Type: 
  Country: None (occurrence: None)
  Receive Date: 20100108
  Receipt Date: 20091231
  Transmission Date: 20100710
  Serious: Yes (Hospitalization)
  Sender: FDA-Public Use
  Company Number: US-GENENTECH-296276

PATIENT
  Sex: Male
  Weight: 106 kg

DRUGS (3)
  1. RITUXAN [Suspect]
     Indication: B-CELL LYMPHOMA
     Dosage: 375 MG/M2, SINGLE
     Route: 042
     Dates: start: 20091117, end: 20091222
  2. TREANDA [Suspect]
     Indication: B-CELL LYMPHOMA
     Dosage: 90 MG/M2, UNK
     Dates: start: 20091118
  3. DIFLUCAN [Suspect]

REACTIONS (2)
  - DERMATITIS [None]
  - ERYTHEMA [None]
